FAERS Safety Report 8923175 (Version 3)
Quarter: 2013Q1

REPORT INFORMATION
  Report Type: Spontaneous
  Country: BR (occurrence: BR)
  Receive Date: 20121123
  Receipt Date: 20130121
  Transmission Date: 20140127
  Serious: Yes (Other)
  Sender: FDA-Public Use
  Company Number: PHHY2012BR105599

PATIENT
  Age: 44 Year
  Sex: Female

DRUGS (3)
  1. GILENYA [Suspect]
     Indication: MULTIPLE SCLEROSIS
     Dosage: 0.5 MG,
     Route: 048
     Dates: start: 20121109
  2. LYRICA [Concomitant]
     Indication: PAIN
     Dosage: UNK
  3. FLUOXETINE [Concomitant]
     Dosage: 20 MG, UNK

REACTIONS (6)
  - Palpitations [Not Recovered/Not Resolved]
  - Dyspnoea [Not Recovered/Not Resolved]
  - Lip swelling [Recovered/Resolved]
  - Oral discomfort [Recovered/Resolved]
  - Lip exfoliation [Not Recovered/Not Resolved]
  - Lip infection [Not Recovered/Not Resolved]
